FAERS Safety Report 10176922 (Version 2)
Quarter: 2014Q2

REPORT INFORMATION
  Report Type: Other
  Country: ES (occurrence: ES)
  Receive Date: 20140516
  Receipt Date: 20140604
  Transmission Date: 20141212
  Serious: Yes (Other)
  Sender: FDA-Public Use
  Company Number: ES-CREALTA PHARMACEUTICALS-2014S1000029

PATIENT
  Age: 51 Year
  Sex: Female

DRUGS (2)
  1. MIGERGOT [Suspect]
     Indication: MIGRAINE WITH AURA
  2. PARACETAMOL [Suspect]
     Indication: MIGRAINE WITH AURA

REACTIONS (3)
  - Carotid artery aneurysm [Recovering/Resolving]
  - Horner^s syndrome [Recovering/Resolving]
  - Carotid artery dissection [Recovering/Resolving]
